FAERS Safety Report 7238991-6 (Version None)
Quarter: 2011Q1

REPORT INFORMATION
  Report Type: 
  Country: None (occurrence: None)
  Receive Date: 20110121
  Receipt Date: 20110117
  Transmission Date: 20110831
  Serious: Yes (Hospitalization)
  Sender: FDA-Public Use
  Company Number: FR-PFIZER INC-2011010746

PATIENT
  Age: 57 Year
  Sex: Male

DRUGS (3)
  1. TAZOCILLINE [Suspect]
     Indication: BONE MARROW FAILURE
     Dosage: 4 G, 3X/DAY
     Route: 042
     Dates: start: 20101225, end: 20101230
  2. CIPROFLOXACIN HYDROCHLORIDE [Concomitant]
     Indication: BONE MARROW FAILURE
     Dosage: 500 MG, 2X/DAY
     Route: 048
     Dates: start: 20101225, end: 20110105
  3. KARDEGIC [Concomitant]
     Dosage: 160 MG, 2X/DAY
     Route: 048

REACTIONS (3)
  - HAEMOPTYSIS [None]
  - COAGULATION FACTOR DECREASED [None]
  - PROTHROMBIN TIME SHORTENED [None]
